FAERS Safety Report 15187956 (Version 1)
Quarter: 2018Q3

REPORT INFORMATION
  Report Type: Spontaneous
  Country: CH (occurrence: CH)
  Receive Date: 20180724
  Receipt Date: 20180724
  Transmission Date: 20181010
  Serious: Yes (Other)
  Sender: FDA-Public Use
  Company Number: CH-ROCHE-2157857

PATIENT
  Age: 39 Year
  Sex: Male

DRUGS (42)
  1. PREDNISOLONE. [Suspect]
     Active Substance: PREDNISOLONE
     Dosage: DOSAGE UNKNOWN
     Route: 065
     Dates: start: 20180428, end: 20180502
  2. BACTRIM [Suspect]
     Active Substance: SULFAMETHOXAZOLE\TRIMETHOPRIM
     Indication: DIFFUSE LARGE B-CELL LYMPHOMA STAGE IV
     Route: 065
     Dates: start: 201803, end: 20180523
  3. CYCLOPHOSPHAMIDE. [Suspect]
     Active Substance: CYCLOPHOSPHAMIDE
     Dosage: DOSAGE UNKOWN
     Route: 065
     Dates: start: 20180618
  4. HYDROXYDAUNORUBICIN [Suspect]
     Active Substance: DOXORUBICIN
     Dosage: DOSAGE UNKNOWN
     Route: 065
     Dates: start: 20180406, end: 20180410
  5. ONCOVIN [Suspect]
     Active Substance: VINCRISTINE SULFATE
     Dosage: DOSAGE UNKNOWN
     Route: 065
     Dates: start: 20180618
  6. ETOPOSIDE. [Suspect]
     Active Substance: ETOPOSIDE
     Dosage: DOSAGE UNKNOWN
     Route: 065
     Dates: start: 20180524, end: 20180529
  7. METHOTREXATE. [Suspect]
     Active Substance: METHOTREXATE
     Dosage: DOSAGE UNKNOWN
     Route: 037
     Dates: start: 20180428, end: 20180502
  8. METHOTREXATE. [Suspect]
     Active Substance: METHOTREXATE
     Dosage: DOSAGE UNKNOWN
     Route: 037
     Dates: start: 20180618
  9. ETOPOSIDE. [Suspect]
     Active Substance: ETOPOSIDE
     Dosage: DOSAGE UNKNOWN
     Route: 065
     Dates: start: 20180428, end: 20180502
  10. PREDNISOLONE. [Suspect]
     Active Substance: PREDNISOLONE
     Dosage: DOSAGE UNKNOWN
     Route: 065
     Dates: start: 20180524, end: 20180529
  11. METHYLPREDNISOLONE. [Suspect]
     Active Substance: METHYLPREDNISOLONE
     Dosage: DOSAGE UNKOWN
     Route: 037
     Dates: start: 20180428, end: 20180502
  12. CYCLOPHOSPHAMIDE. [Suspect]
     Active Substance: CYCLOPHOSPHAMIDE
     Indication: DIFFUSE LARGE B-CELL LYMPHOMA STAGE IV
     Dosage: BRAND UNKNOWN
     Route: 065
     Dates: start: 20180313, end: 20180318
  13. HYDROXYDAUNORUBICIN [Suspect]
     Active Substance: DOXORUBICIN
     Dosage: DOSAGE UNKNOWN
     Route: 065
     Dates: start: 20180428, end: 20180502
  14. HYDROXYDAUNORUBICIN [Suspect]
     Active Substance: DOXORUBICIN
     Dosage: DOSAGE UNKNOWN
     Route: 065
     Dates: start: 20180618
  15. ETOPOSIDE. [Suspect]
     Active Substance: ETOPOSIDE
     Indication: DIFFUSE LARGE B-CELL LYMPHOMA STAGE IV
     Dosage: DOSAGE UNKNOWN
     Route: 065
     Dates: start: 20180313, end: 20180318
  16. PREDNISOLONE. [Suspect]
     Active Substance: PREDNISOLONE
     Dosage: DOSAGE UNKNOWN
     Route: 065
     Dates: start: 20180618
  17. CYTARABINE. [Suspect]
     Active Substance: CYTARABINE
     Indication: DIFFUSE LARGE B-CELL LYMPHOMA STAGE IV
     Dosage: DOSAGE UNLNOWN
     Route: 037
     Dates: start: 20180406, end: 20180410
  18. CYTARABINE. [Suspect]
     Active Substance: CYTARABINE
     Dosage: DOSAGE UNKOWN
     Route: 037
     Dates: start: 20180428, end: 20180502
  19. CYCLOPHOSPHAMIDE. [Suspect]
     Active Substance: CYCLOPHOSPHAMIDE
     Dosage: DOSAGE UNKNOWN
     Route: 065
     Dates: start: 20180524, end: 20180529
  20. ONCOVIN [Suspect]
     Active Substance: VINCRISTINE SULFATE
     Dosage: DOSAGE UNKNOWN
     Route: 065
     Dates: start: 20180524, end: 20180529
  21. ETOPOSIDE. [Suspect]
     Active Substance: ETOPOSIDE
     Dosage: DOSAGE UNKNOWN
     Route: 065
     Dates: start: 20180406, end: 20180410
  22. METHOTREXATE. [Suspect]
     Active Substance: METHOTREXATE
     Dosage: DOSAGE UNKNOWN
     Route: 037
     Dates: start: 20180524, end: 20180529
  23. METHYLPREDNISOLONE. [Suspect]
     Active Substance: METHYLPREDNISOLONE
     Dosage: DOSAGE UNKNOWN
     Route: 037
     Dates: start: 20180524, end: 20180529
  24. HYDROXYDAUNORUBICIN [Suspect]
     Active Substance: DOXORUBICIN
     Dosage: DOSAGE UNKNOWN
     Route: 065
     Dates: start: 20180524, end: 20180529
  25. PREDNISONE. [Suspect]
     Active Substance: PREDNISONE
     Indication: DIFFUSE LARGE B-CELL LYMPHOMA STAGE IV
     Dosage: DOSAGE UNKNOWN
     Route: 065
     Dates: start: 20180313, end: 20180318
  26. PREDNISOLONE. [Suspect]
     Active Substance: PREDNISOLONE
     Indication: DIFFUSE LARGE B-CELL LYMPHOMA STAGE IV
     Dosage: DOSAGE UNKNOWN
     Route: 065
     Dates: start: 20180406, end: 20180410
  27. METHYLPREDNISOLONE. [Suspect]
     Active Substance: METHYLPREDNISOLONE
     Indication: DIFFUSE LARGE B-CELL LYMPHOMA STAGE IV
     Dosage: DOSAGE UNLNOWN
     Route: 037
     Dates: start: 20180406, end: 20180410
  28. RITUXIMAB. [Suspect]
     Active Substance: RITUXIMAB
     Indication: DIFFUSE LARGE B-CELL LYMPHOMA STAGE IV
     Dosage: DOSAGE UNKNOWN
     Route: 065
     Dates: start: 20180406, end: 20180410
  29. CYTARABINE. [Suspect]
     Active Substance: CYTARABINE
     Route: 037
     Dates: start: 20180618
  30. CYTARABINE. [Suspect]
     Active Substance: CYTARABINE
     Dosage: DOSAGE UNKNOWN
     Route: 037
     Dates: start: 20180524, end: 20180529
  31. CYCLOPHOSPHAMIDE. [Suspect]
     Active Substance: CYCLOPHOSPHAMIDE
     Dosage: DOSAGE UNKNOWN
     Route: 065
     Dates: start: 20180406, end: 20180410
  32. ONCOVIN [Suspect]
     Active Substance: VINCRISTINE SULFATE
     Indication: DIFFUSE LARGE B-CELL LYMPHOMA STAGE IV
     Dosage: DOSAGE UNKNOWN
     Route: 065
     Dates: start: 20180313, end: 20180318
  33. ETOPOSIDE. [Suspect]
     Active Substance: ETOPOSIDE
     Dosage: DOSAGE UNKNOWN
     Route: 065
     Dates: start: 20180618
  34. METHOTREXATE. [Suspect]
     Active Substance: METHOTREXATE
     Indication: DIFFUSE LARGE B-CELL LYMPHOMA STAGE IV
     Dosage: DOSAGE UNKNOWN
     Route: 037
     Dates: start: 20180406, end: 20180410
  35. METHYLPREDNISOLONE. [Suspect]
     Active Substance: METHYLPREDNISOLONE
     Route: 037
     Dates: start: 20180618
  36. RITUXIMAB. [Suspect]
     Active Substance: RITUXIMAB
     Dosage: DOSAGE UNKNOWN
     Route: 065
     Dates: start: 20180428, end: 20180502
  37. RITUXIMAB. [Suspect]
     Active Substance: RITUXIMAB
     Dosage: DOSAGE UNKOWN
     Route: 065
     Dates: start: 20180524, end: 20180529
  38. ONCOVIN [Suspect]
     Active Substance: VINCRISTINE SULFATE
     Dosage: DOSAGE UNKNOWN
     Route: 065
     Dates: start: 20180406, end: 20180410
  39. ONCOVIN [Suspect]
     Active Substance: VINCRISTINE SULFATE
     Dosage: DOSAGE UNKNOWN
     Route: 065
     Dates: start: 20180428, end: 20180502
  40. RITUXIMAB. [Suspect]
     Active Substance: RITUXIMAB
     Dosage: DOSAGE UNKNOWN
     Route: 065
     Dates: start: 20180618
  41. CYCLOPHOSPHAMIDE. [Suspect]
     Active Substance: CYCLOPHOSPHAMIDE
     Dosage: DOSAGE UNKNOWN
     Route: 065
     Dates: start: 20180428, end: 20180502
  42. HYDROXYDAUNORUBICIN [Suspect]
     Active Substance: DOXORUBICIN
     Indication: DIFFUSE LARGE B-CELL LYMPHOMA STAGE IV
     Dosage: DOSAGE UNKNOWN
     Route: 065
     Dates: start: 20180313, end: 20180318

REACTIONS (1)
  - Hepatic enzyme increased [Not Recovered/Not Resolved]

NARRATIVE: CASE EVENT DATE: 201804
